FAERS Safety Report 8154506 (Version 3)
Quarter: 2012Q4

REPORT INFORMATION
  Report Type: 
  Country: CA (occurrence: CA)
  Receive Date: 20110923
  Receipt Date: 20121123
  Transmission Date: 20130627
  Serious: No
  Sender: FDA-Public Use
  Company Number: PHHY2011CA83942

PATIENT
  Sex: Female

DRUGS (2)
  1. ACLASTA [Suspect]
     Indication: OSTEOPOROSIS
     Dosage: UNK
     Route: 042
     Dates: start: 20101206
  2. ACLASTA [Suspect]
     Dosage: UNK
     Route: 042
     Dates: start: 20111208

REACTIONS (3)
  - Mean cell haemoglobin increased [Unknown]
  - C-reactive protein increased [Unknown]
  - Influenza like illness [Unknown]
